FAERS Safety Report 22040703 (Version 1)
Quarter: 2023Q1

REPORT INFORMATION
  Report Type: Spontaneous
  Country: US (occurrence: None)
  Receive Date: 20230225
  Receipt Date: 20230225
  Transmission Date: 20230418
  Serious: Yes (Disabling, Other)
  Sender: FDA-Public Use
  Company Number: None

PATIENT
  Age: 70 Year
  Sex: Female
  Weight: 120.6 kg

DRUGS (3)
  1. BACLOFEN [Suspect]
     Active Substance: BACLOFEN
     Indication: Muscle tightness
     Dosage: FREQUENCY : EVERY 8 HOURS;?
     Route: 048
     Dates: start: 20230215, end: 20230225
  2. DEVICE [Concomitant]
     Active Substance: DEVICE
  3. SYNTHROID [Concomitant]
     Active Substance: LEVOTHYROXINE SODIUM

REACTIONS (18)
  - Asthenia [None]
  - Diplopia [None]
  - Eye movement disorder [None]
  - Insomnia [None]
  - Headache [None]
  - Confusional state [None]
  - Nausea [None]
  - Fatigue [None]
  - Urticaria [None]
  - Blister [None]
  - Therapy change [None]
  - Therapy change [None]
  - Influenza [None]
  - Pneumonia [None]
  - Muscle injury [None]
  - Nerve injury [None]
  - Spinal column injury [None]
  - Apraxia [None]

NARRATIVE: CASE EVENT DATE: 20230218
